FAERS Safety Report 26011025 (Version 1)
Quarter: 2025Q4

REPORT INFORMATION
  Report Type: Spontaneous
  Country: US (occurrence: None)
  Receive Date: 20251107
  Receipt Date: 20251107
  Transmission Date: 20260118
  Serious: Yes (Hospitalization)
  Sender: FDA-CTU
  Company Number: None

PATIENT
  Age: 59 Year
  Sex: Female
  Weight: 60.1 kg

DRUGS (5)
  1. CYCLOPHOSPHAMIDE [Suspect]
     Active Substance: CYCLOPHOSPHAMIDE
     Dates: end: 20251031
  2. CYTARABINE [Suspect]
     Active Substance: CYTARABINE
     Dates: start: 20251029
  3. DEXAMETHASONE [Suspect]
     Active Substance: DEXAMETHASONE
     Dates: end: 20251031
  4. DOXORUBICIN HYDROCHLORIDE [Suspect]
     Active Substance: DOXORUBICIN HYDROCHLORIDE
     Dates: end: 20251031
  5. PONATINIB [Suspect]
     Active Substance: PONATINIB

REACTIONS (5)
  - Arthralgia [None]
  - Pyrexia [None]
  - Cellulitis [None]
  - Arthritis bacterial [None]
  - Gout [None]

NARRATIVE: CASE EVENT DATE: 20251103
